FAERS Safety Report 7434552-4 (Version None)
Quarter: 2011Q2

REPORT INFORMATION
  Report Type: 
  Country: None (occurrence: None)
  Receive Date: 20110425
  Receipt Date: 20110413
  Transmission Date: 20111010
  Serious: Yes (Other)
  Sender: FDA-Public Use
  Company Number: US-JNJFOC-20110406335

PATIENT
  Sex: Female
  Weight: 90.72 kg

DRUGS (3)
  1. INVEGA [Suspect]
     Indication: BIPOLAR DISORDER
     Route: 048
  2. SINGULAIR [Concomitant]
     Indication: MULTIPLE ALLERGIES
     Route: 048
  3. ALLEGRA [Concomitant]
     Indication: MULTIPLE ALLERGIES
     Route: 048

REACTIONS (6)
  - WEIGHT INCREASED [None]
  - DRUG DOSE OMISSION [None]
  - FEAR [None]
  - NAUSEA [None]
  - DIARRHOEA [None]
  - HEADACHE [None]
